FAERS Safety Report 10298195 (Version 1)
Quarter: 2014Q3

REPORT INFORMATION
  Report Type: Spontaneous
  Country: US (occurrence: US)
  Receive Date: 20140711
  Receipt Date: 20140711
  Transmission Date: 20150326
  Serious: No
  Sender: FDA-Public Use
  Company Number: US-GLAXOSMITHKLINE-A1057857A

PATIENT
  Age: 29 Year
  Sex: Male

DRUGS (2)
  1. FLOVENT [Suspect]
     Active Substance: FLUTICASONE PROPIONATE
     Indication: ASTHMA
     Dosage: 1SPR TWICE PER DAY
     Route: 048
     Dates: start: 201310
  2. PROTONIX [Concomitant]
     Active Substance: PANTOPRAZOLE SODIUM

REACTIONS (1)
  - Weight increased [Not Recovered/Not Resolved]

NARRATIVE: CASE EVENT DATE: 201311
